FAERS Safety Report 4640713-X (Version None)
Quarter: 2005Q2

REPORT INFORMATION
  Report Type: 
  Country: None (occurrence: None)
  Receive Date: 20050419
  Receipt Date: 20050310
  Transmission Date: 20051028
  Serious: Yes (Death)
  Sender: FDA-Public Use
  Company Number: 805#1#2005-00009

PATIENT
  Age: 50 Year
  Sex: Male

DRUGS (12)
  1. ALPROSTADIL [Suspect]
     Indication: HEPATIC FAILURE
     Dosage: SEE IMAGE
     Route: 041
     Dates: start: 20021007, end: 20021019
  2. ALPROSTADIL [Suspect]
     Indication: HEPATIC FAILURE
     Dosage: SEE IMAGE
     Route: 041
     Dates: start: 20021019, end: 20021213
  3. LAMIVUDINE [Concomitant]
  4. MENATETRENONE [Concomitant]
  5. GASTER D (DAMOTIDINE) [Concomitant]
  6. ZANTAC [Concomitant]
  7. BIOFERMIN (BACILLUS SUBTILLIS, LACTOBACILLUS ACIDOPHILUS, STREPTOCOCCU [Concomitant]
  8. HALCION [Concomitant]
  9. FLUOROURACIL [Concomitant]
  10. FERON (INTERFERON BETA) [Concomitant]
  11. AMINOLEBAN (AMINO ACIDS NOS) [Concomitant]
  12. NEO-MINOPHAGEN (GLYCERRHIZIC ACID, AMMONIUM SALT) [Concomitant]

REACTIONS (4)
  - BILIARY DILATATION [None]
  - HEPATIC FAILURE [None]
  - HEPATIC NEOPLASM MALIGNANT [None]
  - OESOPHAGEAL VARICES HAEMORRHAGE [None]
